FAERS Safety Report 4549456-4 (Version None)
Quarter: 2005Q1

REPORT INFORMATION
  Report Type: 
  Country: None (occurrence: None)
  Receive Date: 20050107
  Receipt Date: 20050107
  Transmission Date: 20050727
  Serious: Yes (Hospitalization)
  Sender: FDA-Public Use
  Company Number: None

PATIENT
  Age: 54 Year
  Sex: Male
  Weight: 67.586 kg

DRUGS (9)
  1. DOCETAXEL 35MG/M2 AVENTIS [Suspect]
     Indication: LUNG NEOPLASM MALIGNANT
     Dosage: 35MG/M2 INTRAVENOUS
     Route: 042
     Dates: start: 20041111, end: 20041228
  2. CARBOPLATIN [Suspect]
     Indication: LUNG NEOPLASM MALIGNANT
     Dosage: AUC 5 INTRAVENOUS
     Route: 042
     Dates: start: 20041111, end: 20041228
  3. GUAIFEN [Concomitant]
  4. HYDROCODONE [Concomitant]
  5. NAPROXEN [Concomitant]
  6. RITALIN [Concomitant]
  7. AMBIEN [Concomitant]
  8. COMPAZINE [Concomitant]
  9. ATIVAN [Concomitant]

REACTIONS (2)
  - DYSPNOEA [None]
  - EMPYEMA [None]
